FAERS Safety Report 5779601-4 (Version None)
Quarter: 2008Q2

REPORT INFORMATION
  Report Type: 
  Country: None (occurrence: None)
  Receive Date: 20080619
  Receipt Date: 20070620
  Transmission Date: 20081010
  Serious: No
  Sender: FDA-Public Use
  Company Number: US-ASTRAZENECA-2007UW14719

PATIENT
  Sex: Male

DRUGS (1)
  1. ATACAND [Suspect]
     Dosage: 16/12.5 MG
     Route: 048

REACTIONS (1)
  - FEELING DRUNK [None]
